FAERS Safety Report 23318775 (Version 1)
Quarter: 2023Q4

REPORT INFORMATION
  Report Type: Spontaneous
  Country: US (occurrence: None)
  Receive Date: 20231220
  Receipt Date: 20231220
  Transmission Date: 20240109
  Serious: No
  Sender: FDA-Public Use
  Company Number: US-ROCHE-3389348

PATIENT
  Sex: Male

DRUGS (1)
  1. HEMLIBRA [Suspect]
     Active Substance: EMICIZUMAB-KXWH
     Indication: Factor VIII deficiency
     Dosage: 1.3ML (200 MG)?NEXT INFUSION DATE: JUL/2021
     Route: 058

REACTIONS (2)
  - Gingival bleeding [Recovered/Resolved]
  - Skin laceration [Unknown]
